FAERS Safety Report 20505495 (Version 1)
Quarter: 2022Q1

REPORT INFORMATION
  Report Type: Spontaneous
  Country: PL (occurrence: PL)
  Receive Date: 20220223
  Receipt Date: 20220223
  Transmission Date: 20220423
  Serious: Yes (Hospitalization, Other)
  Sender: FDA-Public Use
  Company Number: None

PATIENT
  Age: 15 Year
  Sex: Female

DRUGS (3)
  1. ITRACONAZOLE [Suspect]
     Active Substance: ITRACONAZOLE
     Indication: Respiratory tract infection
     Dosage: 200 MILLIGRAM X 2
     Route: 048
  2. AMOXICILLIN\CLAVULANIC ACID [Suspect]
     Active Substance: AMOXICILLIN\CLAVULANIC ACID
     Indication: Bronchopulmonary disease
     Dosage: UNK
     Route: 048
  3. AZITHROMYCIN [Suspect]
     Active Substance: AZITHROMYCIN
     Indication: Prophylaxis
     Dosage: UNK
     Route: 065

REACTIONS (3)
  - Weight decreased [Unknown]
  - Condition aggravated [Unknown]
  - Bronchopulmonary aspergillosis [Recovered/Resolved]
